FAERS Safety Report 5422179-5 (Version None)
Quarter: 2007Q3

REPORT INFORMATION
  Report Type: 
  Country: None (occurrence: None)
  Receive Date: 20070822
  Receipt Date: 20070813
  Transmission Date: 20080115
  Serious: Yes (Hospitalization)
  Sender: FDA-Public Use
  Company Number: FR-ASTRAZENECA-2007CG01183

PATIENT
  Age: 26028 Day
  Sex: Female

DRUGS (16)
  1. NEXIUM [Suspect]
     Route: 048
     Dates: start: 20070711, end: 20070718
  2. LYRICA [Suspect]
     Indication: ALLODYNIA
     Route: 048
     Dates: start: 20070712, end: 20070716
  3. CLONAZEPAM [Suspect]
     Indication: PAIN
     Route: 048
     Dates: start: 20070713, end: 20070717
  4. TRAMADOL HCL [Suspect]
     Indication: PAIN
     Route: 048
     Dates: start: 20070712, end: 20070717
  5. PROFENID [Suspect]
     Route: 048
     Dates: start: 20070711, end: 20070716
  6. NEURONTIN [Concomitant]
     Indication: ALLODYNIA
     Route: 048
     Dates: start: 20070711, end: 20070716
  7. NEURONTIN [Concomitant]
     Route: 048
     Dates: start: 20070716, end: 20070717
  8. PARACETAMOL [Concomitant]
     Route: 048
  9. LASIX [Concomitant]
     Dates: end: 20070716
  10. LASIX [Concomitant]
     Dates: start: 20070717
  11. BISOPROLOL [Concomitant]
     Dates: end: 20070718
  12. IRBESARTAN [Concomitant]
     Dates: end: 20070718
  13. LOXEN [Concomitant]
     Dates: end: 20070718
  14. PLAVIX [Concomitant]
     Dates: end: 20070718
  15. METFORMINE [Concomitant]
     Dates: end: 20070718
  16. ATHYMIL [Concomitant]
     Dates: end: 20070718

REACTIONS (2)
  - ENCEPHALOPATHY [None]
  - HYPERAMMONAEMIA [None]
